FAERS Safety Report 22278701 (Version 2)
Quarter: 2023Q2

REPORT INFORMATION
  Report Type: Other
  Country: IT (occurrence: IT)
  Receive Date: 20230503
  Receipt Date: 20230504
  Transmission Date: 20230721
  Serious: Yes (Disabling)
  Sender: FDA-Public Use
  Company Number: IT-ASTELLAS-2008002652

PATIENT
  Age: 76 Year
  Sex: Female

DRUGS (5)
  1. TARCEVA [Suspect]
     Active Substance: ERLOTINIB HYDROCHLORIDE
     Indication: Lung neoplasm malignant
     Route: 048
     Dates: start: 20080422, end: 20080822
  2. ASPIRIN [Concomitant]
     Active Substance: ASPIRIN
     Indication: Product used for unknown indication
     Route: 048
     Dates: start: 20080728, end: 20080909
  3. DEXAMETHASONE [Concomitant]
     Active Substance: DEXAMETHASONE
     Indication: Product used for unknown indication
     Route: 048
     Dates: start: 20080422, end: 20080909
  4. OMEPRAZOLE [Concomitant]
     Active Substance: OMEPRAZOLE
     Indication: Product used for unknown indication
     Dosage: UNK UNK, UNKNOWN FREQ.
     Route: 048
     Dates: start: 20080422, end: 20080909
  5. LORMETAZEPAM [Concomitant]
     Active Substance: LORMETAZEPAM
     Indication: Product used for unknown indication
     Route: 048
     Dates: start: 20080422, end: 20080909

REACTIONS (2)
  - Skin ulcer [Recovered/Resolved]
  - Skin ulcer haemorrhage [Recovered/Resolved]

NARRATIVE: CASE EVENT DATE: 20080810
